FAERS Safety Report 8469670-5 (Version None)
Quarter: 2012Q2

REPORT INFORMATION
  Report Type: 
  Country: None (occurrence: None)
  Receive Date: 20120626
  Receipt Date: 20120613
  Transmission Date: 20120825
  Serious: Yes (Other)
  Sender: FDA-Public Use
  Company Number: US-FRI-1000031333

PATIENT
  Sex: Female

DRUGS (7)
  1. ZANAFLEX [Concomitant]
     Indication: MUSCLE SPASMS
     Dosage: AS NEEDED
  2. PRAVASTATIN [Concomitant]
     Indication: BLOOD CHOLESTEROL INCREASED
     Dosage: 40 MG
  3. LAMICTAL [Concomitant]
     Indication: DEPRESSION
     Dosage: 200 MG
  4. VIIBRYD [Suspect]
     Indication: DEPRESSION
     Dosage: 20 MG
     Route: 048
     Dates: end: 20120301
  5. HYDROXYZINE [Concomitant]
     Indication: MIGRAINE
     Dosage: 25 MG EVERY 6 HOURS AS NEEDED
  6. VERAPAMIL [Concomitant]
     Indication: HYPERTENSION
     Dosage: 120 MG
  7. VIIBRYD [Suspect]
     Dosage: 10 MG
     Route: 048
     Dates: start: 20120301

REACTIONS (1)
  - PARTIAL SEIZURES [None]
